FAERS Safety Report 9613370 (Version 4)
Quarter: 2014Q1

REPORT INFORMATION
  Report Type: Report from Study
  Country: US (occurrence: US)
  Receive Date: 20131010
  Receipt Date: 20140328
  Transmission Date: 20141002
  Serious: Yes (Hospitalization, Other)
  Sender: FDA-Public Use
  Company Number: US-PFIZER INC-2013282475

PATIENT
  Age: 4 Year
  Sex: Male
  Weight: 16.4 kg

DRUGS (10)
  1. CRIZOTINIB [Suspect]
     Indication: PRIMITIVE NEUROECTODERMAL TUMOUR
     Dosage: 165 MG/M2, BID DAILY
     Route: 048
     Dates: start: 20130722, end: 20130929
  2. CYCLOPHOSPHAMIDE [Suspect]
     Indication: PRIMITIVE NEUROECTODERMAL TUMOUR
     Dosage: 250 MG/M2/DOSE, CYCLIC, DAYS 1-5
     Route: 042
     Dates: start: 20130722, end: 20130913
  3. TOPOTECAN HYDROCHLORIDE [Suspect]
     Indication: PRIMITIVE NEUROECTODERMAL TUMOUR
     Dosage: 0.75 MG/M2/DOSE DAYS 1-5, 28 DAY COURSE
     Dates: start: 20130722, end: 20130913
  4. ONDANSETRON [Concomitant]
     Dosage: UNK
     Dates: start: 20130722, end: 20130727
  5. ONDANSETRON [Concomitant]
     Dosage: UNK
     Dates: start: 20130812, end: 20130817
  6. ONDANSETRON [Concomitant]
     Dosage: UNK
     Dates: start: 20130909, end: 20130914
  7. BENADRYL [Concomitant]
     Dosage: UNK
     Dates: start: 20130729
  8. MIRALAX [Concomitant]
     Dosage: UNK
     Dates: start: 20130919, end: 20131001
  9. ACETAMINOPHEN [Concomitant]
     Dosage: UNK
     Dates: start: 20130928, end: 20130929
  10. CEFTRIAXONE [Concomitant]
     Dosage: UNK
     Dates: start: 20130928

REACTIONS (2)
  - Sepsis [Recovering/Resolving]
  - Hypoxia [Recovered/Resolved]
